FAERS Safety Report 21173627 (Version 1)
Quarter: 2022Q3

REPORT INFORMATION
  Report Type: Spontaneous
  Country: US (occurrence: US)
  Receive Date: 20220804
  Receipt Date: 20220804
  Transmission Date: 20221026
  Serious: No
  Sender: FDA-Public Use
  Company Number: US-PERRIGO-21US009806

PATIENT
  Age: 34 Year
  Sex: Female
  Weight: 99.773 kg

DRUGS (2)
  1. LORATADINE [Suspect]
     Active Substance: LORATADINE
     Indication: Seasonal allergy
     Dosage: 10 MG, QD AT HS PRN
     Route: 048
  2. LORATADINE [Suspect]
     Active Substance: LORATADINE
     Dosage: 10 MG, TWICE
     Route: 048
     Dates: start: 20210715, end: 20210715

REACTIONS (2)
  - Extra dose administered [Recovered/Resolved]
  - Wrong product administered [Recovered/Resolved]

NARRATIVE: CASE EVENT DATE: 20210715
